FAERS Safety Report 10261143 (Version 1)
Quarter: 2014Q2

REPORT INFORMATION
  Report Type: Spontaneous
  Country: US (occurrence: US)
  Receive Date: 20140626
  Receipt Date: 20140626
  Transmission Date: 20141212
  Serious: Yes (Other)
  Sender: FDA-Public Use
  Company Number: US-BEH-2014043359

PATIENT
  Age: 64 Year
  Sex: Male

DRUGS (1)
  1. ZEMAIRA [Suspect]

REACTIONS (2)
  - Pneumonia [Unknown]
  - Malaise [Unknown]
